FAERS Safety Report 16520142 (Version 1)
Quarter: 2019Q3

REPORT INFORMATION
  Report Type: Spontaneous
  Country: US (occurrence: US)
  Receive Date: 20190702
  Receipt Date: 20190702
  Transmission Date: 20191004
  Serious: No
  Sender: FDA-Public Use
  Company Number: US-TARO-2019TAR00187

PATIENT
  Age: 55 Year
  Sex: Male
  Weight: 99.77 kg

DRUGS (5)
  1. CLOTRIMAZOLE/BETAMETHASONE DIPROPIONATE CREAM USP 1%/0.05% [Suspect]
     Active Substance: BETAMETHASONE DIPROPIONATE\CLOTRIMAZOLE
     Indication: RASH
     Dosage: UNK UNK, 2X/DAY
     Route: 061
     Dates: start: 2018
  2. CLOTRIMAZOLE/BETAMETHASONE DIPROPIONATE CREAM USP 1%/0.05% [Suspect]
     Active Substance: BETAMETHASONE DIPROPIONATE\CLOTRIMAZOLE
     Dosage: UNK UNK, ONCE
     Route: 045
     Dates: start: 20190306, end: 20190306
  3. DESONATE [Concomitant]
     Active Substance: DESONIDE
     Route: 061
  4. ALCORTIN A [Suspect]
     Active Substance: ALOE VERA LEAF\HYDROCORTISONE ACETATE\IODOQUINOL
     Indication: ACNE
     Dosage: UNK
     Dates: start: 20190306
  5. ALCORTIN A [Suspect]
     Active Substance: ALOE VERA LEAF\HYDROCORTISONE ACETATE\IODOQUINOL
     Indication: INGROWN HAIR

REACTIONS (7)
  - Product administered at inappropriate site [Recovered/Resolved]
  - Ingrown hair [Not Recovered/Not Resolved]
  - Acne [Not Recovered/Not Resolved]
  - Headache [Not Recovered/Not Resolved]
  - Dyspnoea [Recovered/Resolved]
  - Dizziness [Not Recovered/Not Resolved]
  - Taste disorder [Recovered/Resolved]

NARRATIVE: CASE EVENT DATE: 2019
